FAERS Safety Report 9341219 (Version 3)
Quarter: 2013Q4

REPORT INFORMATION
  Report Type: Report from Study
  Country: DE (occurrence: DE)
  Receive Date: 20130611
  Receipt Date: 20131213
  Transmission Date: 20140711
  Serious: Yes (Death, Hospitalization, Other)
  Sender: FDA-Public Use
  Company Number: DE-ROCHE-1233068

PATIENT
  Age: 51 Year
  Sex: Male
  Weight: 65 kg

DRUGS (5)
  1. PEG-INTERFERON ALFA 2A [Suspect]
     Indication: CHRONIC HEPATITIS C
     Route: 058
     Dates: start: 20130419
  2. PEG-INTERFERON ALFA 2A [Suspect]
     Dosage: LAST DOSE PRIOR TO EVENT TAKEN ON 23/AUG/2013
     Route: 058
  3. RIBAVIRIN [Suspect]
     Indication: CHRONIC HEPATITIS C
     Dosage: LAST DOSE PRIOR TO EVENT TAKEN ON 15/MAY/2013
     Route: 048
     Dates: start: 20130419
  4. RIBAVIRIN [Suspect]
     Dosage: LAST DOSE PRIOR TO EVENT TAKEN ON 04/SEP/2013.
     Route: 048
  5. TELAPREVIR [Suspect]
     Indication: CHRONIC HEPATITIS C
     Dosage: LAST DOSE PRIOR TO EVENT TAKEN ON 11/JUL/2013
     Route: 048
     Dates: start: 20130419

REACTIONS (5)
  - Hyponatraemia [Recovered/Resolved]
  - Renal failure [Recovered/Resolved]
  - Hyperkalaemia [Recovered/Resolved]
  - Hepatic failure [Recovered/Resolved]
  - Hepatorenal failure [Fatal]
